FAERS Safety Report 15221959 (Version 1)
Quarter: 2018Q3

REPORT INFORMATION
  Report Type: Spontaneous
  Country: US (occurrence: US)
  Receive Date: 20180731
  Receipt Date: 20180731
  Transmission Date: 20181010
  Serious: Yes (Hospitalization, Other)
  Sender: FDA-Public Use
  Company Number: US-SA-2018SA206571

PATIENT
  Age: 50 Year
  Sex: Female

DRUGS (1)
  1. AUBAGIO [Suspect]
     Active Substance: TERIFLUNOMIDE

REACTIONS (9)
  - Blood creatine phosphokinase increased [Unknown]
  - Rash [Unknown]
  - Urinary tract infection [Unknown]
  - Pyrexia [Unknown]
  - Fungal infection [Unknown]
  - Asthenia [Unknown]
  - Rhabdomyolysis [Unknown]
  - Dermatomyositis [Unknown]
  - Pain [Unknown]

NARRATIVE: CASE EVENT DATE: 20180617
